FAERS Safety Report 24960975 (Version 3)
Quarter: 2025Q2

REPORT INFORMATION
  Report Type: Report from Study
  Country: BG (occurrence: BG)
  Receive Date: 20250212
  Receipt Date: 20250422
  Transmission Date: 20250717
  Serious: Yes (Hospitalization, Other)
  Sender: AKCEA THERAPEUTICS
  Company Number: BG-AKCEA THERAPEUTICS, INC.-2025IS000398

PATIENT

DRUGS (10)
  1. TEGSEDI [Suspect]
     Active Substance: INOTERSEN SODIUM
     Indication: Hereditary neuropathic amyloidosis
     Dosage: 284 MILLIGRAM, QW
     Route: 058
     Dates: start: 20231108
  2. ASCORBIC ACID\ZINC SULFATE [Concomitant]
     Active Substance: ASCORBIC ACID\ZINC SULFATE
     Indication: Contusion
     Dosage: 1 DOSAGE FORM, QD
     Route: 065
  3. MAGNESIUM [Concomitant]
     Active Substance: MAGNESIUM
     Indication: Extrasystoles
     Route: 065
  4. VITAMIN D NOS [Concomitant]
     Active Substance: CHOLECALCIFEROL\ERGOCALCIFEROL
     Indication: Product used for unknown indication
     Route: 065
  5. PREGABALIN [Concomitant]
     Active Substance: PREGABALIN
     Indication: Neuralgia
     Dosage: 50 MILLIGRAM, BID
     Route: 065
  6. ARIXTRA [Concomitant]
     Active Substance: FONDAPARINUX SODIUM
     Indication: Anticoagulant therapy
     Route: 065
     Dates: start: 202502
  7. ARIXTRA [Concomitant]
     Active Substance: FONDAPARINUX SODIUM
     Indication: Osteoarthritis
     Dosage: 2.5MG/0.5L - 2500 MILLIGRAM, QD
     Route: 058
     Dates: start: 202501, end: 20250201
  8. MAGNESIUM OROTATE [Concomitant]
     Active Substance: MAGNESIUM OROTATE
     Indication: Product used for unknown indication
     Dosage: 500 MILLIGRAM, BID
     Route: 065
  9. ALLDONE [Concomitant]
     Indication: Pain
     Dosage: 100 MILLIGRAM, QD
     Route: 065
     Dates: start: 202502
  10. ALLDONE [Concomitant]
     Indication: Osteoarthritis
     Route: 048
     Dates: start: 202501, end: 20250201

REACTIONS (3)
  - Osteoarthritis [Recovered/Resolved]
  - Plateletcrit decreased [Recovered/Resolved]
  - Monocyte percentage increased [Not Recovered/Not Resolved]

NARRATIVE: CASE EVENT DATE: 20250126
